FAERS Safety Report 13990033 (Version 2)
Quarter: 2017Q3

REPORT INFORMATION
  Report Type: Spontaneous
  Country: JP (occurrence: JP)
  Receive Date: 20170920
  Receipt Date: 20170929
  Transmission Date: 20171128
  Serious: Yes (Hospitalization)
  Sender: FDA-Public Use
  Company Number: JP-ROCHE-1994884

PATIENT
  Age: 42 Year
  Sex: Male

DRUGS (1)
  1. XOLAIR [Suspect]
     Active Substance: OMALIZUMAB
     Indication: ASTHMA
     Route: 058
     Dates: start: 20170331

REACTIONS (1)
  - Asthma [Unknown]
